FAERS Safety Report 5131923-6 (Version None)
Quarter: 2006Q4

REPORT INFORMATION
  Report Type: 
  Country: None (occurrence: None)
  Receive Date: 20061016
  Receipt Date: 20061002
  Transmission Date: 20070319
  Serious: Yes (Other)
  Sender: FDA-Public Use
  Company Number: 2006120413

PATIENT
  Sex: Female
  Weight: 54.4316 kg

DRUGS (4)
  1. CHANTIX                           (VARENICLINE) [Suspect]
     Indication: SMOKING CESSATION THERAPY
     Dosage: 0.5 MG (0.5 MG,1 IN 1 D),ORAL
     Route: 048
     Dates: start: 20061001, end: 20061002
  2. VYTORIN [Concomitant]
  3. LEXAPRO [Concomitant]
  4. ADVAIR HFA [Concomitant]

REACTIONS (5)
  - AGEUSIA [None]
  - DYSGEUSIA [None]
  - HYPERSENSITIVITY [None]
  - INSOMNIA [None]
  - RASH PRURITIC [None]
